FAERS Safety Report 21056052 (Version 2)
Quarter: 2023Q1

REPORT INFORMATION
  Report Type: Spontaneous
  Country: GB (occurrence: None)
  Receive Date: 20220708
  Receipt Date: 20230329
  Transmission Date: 20230418
  Serious: Yes (Other)
  Sender: FDA-Public Use
  Company Number: None

PATIENT
  Age: 66 Year
  Sex: Female
  Weight: 125 kg

DRUGS (5)
  1. METHOTREXATE [Suspect]
     Active Substance: METHOTREXATE
     Indication: Product used for unknown indication
     Dosage: STRENGTH: 2.5MG
     Route: 065
  2. METHOTREXATE [Suspect]
     Active Substance: METHOTREXATE
     Dosage: STRENGTH: 2.5 MG
     Route: 048
     Dates: start: 2022
  3. CETIRIZINE [Concomitant]
     Active Substance: CETIRIZINE HYDROCHLORIDE
     Dosage: STRENGTH: 10 MG; TAKE ONE TABLET DAILY FOR 7 DAYS. THEN ONE TABLET DAILY AS AND WHEN REQUIRED
     Route: 065
     Dates: start: 20220530
  4. FOLIC ACID [Concomitant]
     Active Substance: FOLIC ACID
     Dosage: STRENGTH: 5 MG; (TWO DAYS AFTER METHOTREXATE)
     Route: 065
     Dates: start: 20220406, end: 20220629
  5. FOLIC ACID [Concomitant]
     Active Substance: FOLIC ACID
     Dosage: STRENGTH: 5 MG; (TWO DAYS AFTER METHOTREXATE)
     Route: 065
     Dates: start: 20220413

REACTIONS (5)
  - Vision blurred [Recovering/Resolving]
  - Head discomfort [Unknown]
  - Gait disturbance [Unknown]
  - Pruritus [Unknown]
  - Multiple sclerosis [Unknown]

NARRATIVE: CASE EVENT DATE: 20220101
